FAERS Safety Report 9154728 (Version 1)
Quarter: 2013Q1

REPORT INFORMATION
  Report Type: Spontaneous
  Country: US (occurrence: None)
  Receive Date: 20130305
  Receipt Date: 20130305
  Transmission Date: 20140127
  Serious: Yes (Hospitalization, Other)
  Sender: FDA-Public Use
  Company Number: None

PATIENT
  Sex: Female

DRUGS (1)
  1. LAMOTRIGINE [Suspect]
     Indication: EPILEPSY
     Dosage: UP TO 100MG BID PO
     Route: 048
     Dates: start: 2009

REACTIONS (3)
  - Product substitution issue [None]
  - Convulsion [None]
  - Toxicity to various agents [None]
